FAERS Safety Report 8518808-X (Version None)
Quarter: 2012Q3

REPORT INFORMATION
  Report Type: 
  Country: None (occurrence: None)
  Receive Date: 20120718
  Receipt Date: 20120713
  Transmission Date: 20120928
  Serious: Yes (Hospitalization, Other)
  Sender: FDA-Public Use
  Company Number: PHFR2012GB002672

PATIENT
  Sex: Female

DRUGS (3)
  1. CLOZARIL [Suspect]
     Indication: SCHIZOPHRENIA
     Dosage: 200 MG, QD (75 MG MANE AND 125 MG NOCTE)
     Route: 048
     Dates: start: 20050715
  2. DULOXETIME HYDROCHLORIDE [Concomitant]
     Dosage: 60 MG, QD
     Route: 048
  3. VALPROIC ACID [Concomitant]
     Dosage: 200 MG, QD
     Route: 048

REACTIONS (6)
  - WHITE BLOOD CELL COUNT INCREASED [None]
  - WHITE BLOOD CELL COUNT DECREASED [None]
  - NEUTROPENIA [None]
  - NEUTROPHIL COUNT INCREASED [None]
  - BREAST CANCER [None]
  - PLATELET COUNT DECREASED [None]
